FAERS Safety Report 24870602 (Version 1)
Quarter: 2025Q1

REPORT INFORMATION
  Report Type: Spontaneous
  Country: PT (occurrence: PT)
  Receive Date: 20250121
  Receipt Date: 20250121
  Transmission Date: 20250408
  Serious: Yes (Other)
  Sender: CELLTRION
  Company Number: PT-009507513-2407PRT006242

PATIENT

DRUGS (6)
  1. INFLIXIMAB [Suspect]
     Active Substance: INFLIXIMAB
     Indication: Product used for unknown indication
     Dates: start: 202312
  2. PEMBROLIZUMAB [Suspect]
     Active Substance: PEMBROLIZUMAB
     Indication: Triple negative breast cancer
     Dates: start: 202309
  3. CARBOPLATIN [Suspect]
     Active Substance: CARBOPLATIN
     Indication: Triple negative breast cancer
     Dates: start: 202309, end: 2023
  4. CARBOPLATIN [Suspect]
     Active Substance: CARBOPLATIN
     Dates: start: 202310
  5. PACLITAXEL [Suspect]
     Active Substance: PACLITAXEL
     Indication: Triple negative breast cancer
     Dates: start: 202309, end: 2023
  6. PACLITAXEL [Suspect]
     Active Substance: PACLITAXEL
     Dates: start: 202310

REACTIONS (10)
  - Enterocolitis haemorrhagic [Recovering/Resolving]
  - Colitis ulcerative [Recovering/Resolving]
  - Diarrhoea haemorrhagic [Recovered/Resolved]
  - Alopecia [Unknown]
  - Asthenia [Unknown]
  - Nausea [Unknown]
  - Inflammation [Unknown]
  - Abdominal pain [Unknown]
  - Toxicity to various agents [Unknown]
  - Product use in unapproved indication [Unknown]

NARRATIVE: CASE EVENT DATE: 20230901
